FAERS Safety Report 8371425-7 (Version None)
Quarter: 2012Q2

REPORT INFORMATION
  Report Type: 
  Country: None (occurrence: None)
  Receive Date: 20120518
  Receipt Date: 20120515
  Transmission Date: 20120825
  Serious: Yes (Death, Life-Threatening, Hospitalization)
  Sender: FDA-Public Use
  Company Number: US-GLAXOSMITHKLINE-Z0014386C

PATIENT
  Age: 72 Year
  Sex: Male

DRUGS (2)
  1. BENDAMUSTINE HYDROCHLORIDE [Suspect]
     Indication: B-CELL LYMPHOMA
     Dosage: 90MGM2 CYCLIC
     Route: 042
     Dates: start: 20110922
  2. OFATUMUMAB [Suspect]
     Indication: B-CELL LYMPHOMA
     Dosage: 1000MG CYCLIC
     Route: 042
     Dates: start: 20110921

REACTIONS (1)
  - PNEUMONIA [None]
